FAERS Safety Report 5614715-0 (Version None)
Quarter: 2008Q1

REPORT INFORMATION
  Report Type: 
  Country: None (occurrence: None)
  Receive Date: 20080131
  Receipt Date: 20080117
  Transmission Date: 20080703
  Serious: Yes (Hospitalization)
  Sender: FDA-Public Use
  Company Number: 8028792

PATIENT
  Age: 70 Year
  Sex: Male

DRUGS (6)
  1. KEPPRA [Suspect]
     Indication: EPILEPSY
     Dosage: 500 MG 2/D PO
     Route: 048
     Dates: start: 20050601
  2. XYZAL [Suspect]
     Indication: PRURITUS
     Dosage: PO
     Route: 048
     Dates: start: 20071022, end: 20071024
  3. STILNOX [Concomitant]
  4. SOTALOL HCL [Concomitant]
  5. PROZAC [Concomitant]
  6. TANAKAN [Concomitant]

REACTIONS (4)
  - DISEASE RECURRENCE [None]
  - DRUG INEFFECTIVE [None]
  - DRUG INTERACTION [None]
  - PARTIAL SEIZURES [None]
